FAERS Safety Report 4441427-1 (Version None)
Quarter: 2004Q3

REPORT INFORMATION
  Report Type: 
  Country: None (occurrence: None)
  Receive Date: 20040728
  Receipt Date: 20040329
  Transmission Date: 20050211
  Serious: No
  Sender: FDA-Public Use
  Company Number: USA040363512

PATIENT
  Age: 44 Year
  Sex: Male
  Weight: 110 kg

DRUGS (2)
  1. STRATTERA [Suspect]
     Indication: ATTENTION DEFICIT/HYPERACTIVITY DISORDER
     Dosage: 40 MG DAY
     Dates: start: 20040323
  2. WELLBUTRIN [Concomitant]

REACTIONS (1)
  - MICTURITION URGENCY [None]
